FAERS Safety Report 18982596 (Version 6)
Quarter: 2022Q2

REPORT INFORMATION
  Report Type: Spontaneous
  Country: US (occurrence: US)
  Receive Date: 20210308
  Receipt Date: 20220401
  Transmission Date: 20220721
  Serious: Yes (Other)
  Sender: FDA-Public Use
  Company Number: US-PFIZER INC-2021245164

PATIENT
  Age: 79 Year
  Sex: Female

DRUGS (1)
  1. TOVIAZ [Suspect]
     Active Substance: FESOTERODINE FUMARATE
     Indication: Incontinence
     Dosage: 8 MG

REACTIONS (5)
  - Lung neoplasm malignant [Unknown]
  - Adenocarcinoma [Unknown]
  - Malignant melanoma [Unknown]
  - Illness [Unknown]
  - Hypoacusis [Unknown]
